FAERS Safety Report 8066891-0 (Version None)
Quarter: 2012Q1

REPORT INFORMATION
  Report Type: 
  Country: None (occurrence: None)
  Receive Date: 20120124
  Receipt Date: 20120116
  Transmission Date: 20120608
  Serious: Yes (Hospitalization)
  Sender: FDA-Public Use
  Company Number: US-BAYER-2011-090875

PATIENT
  Age: 34 Year
  Sex: Female
  Weight: 54.422 kg

DRUGS (7)
  1. DROSPIRENONE AND ETHINYL ESTRADIOL [Suspect]
     Indication: ACNE
  2. YAZ [Suspect]
     Indication: ACNE
  3. CIPROFLOXACIN [Concomitant]
     Dosage: UNK
     Route: 048
     Dates: start: 20080810
  4. YAZ [Suspect]
     Indication: CONTRACEPTION
     Dosage: UNK
     Dates: start: 20070101, end: 20080901
  5. YASMIN [Suspect]
     Indication: CONTRACEPTION
     Dosage: UNK
     Dates: start: 20070101, end: 20080901
  6. DROSPIRENONE AND ETHINYL ESTRADIOL [Suspect]
     Indication: CONTRACEPTION
     Dosage: UNK
     Dates: start: 20070101, end: 20080901
  7. YASMIN [Suspect]
     Indication: ACNE

REACTIONS (8)
  - ABDOMINAL PAIN [None]
  - ANXIETY [None]
  - INJURY [None]
  - GALLBLADDER DISORDER [None]
  - DYSPEPSIA [None]
  - EMOTIONAL DISTRESS [None]
  - PROCEDURAL PAIN [None]
  - BILIARY DYSKINESIA [None]
